FAERS Safety Report 4873816-5 (Version None)
Quarter: 2006Q1

REPORT INFORMATION
  Report Type: 
  Country: None (occurrence: None)
  Receive Date: 20060106
  Receipt Date: 20051222
  Transmission Date: 20060701
  Serious: Yes (Hospitalization)
  Sender: FDA-Public Use
  Company Number: FRWYE259022DEC05

PATIENT
  Age: 60 Year
  Sex: Male

DRUGS (1)
  1. ENBREL [Suspect]
     Indication: ANKYLOSING SPONDYLITIS
     Dosage: UNKNOWN
     Route: 058
     Dates: start: 20041001, end: 20050701

REACTIONS (3)
  - DIAPHRAGMATIC DISORDER [None]
  - OBSTRUCTIVE AIRWAYS DISORDER [None]
  - WEIGHT INCREASED [None]
